FAERS Safety Report 25326459 (Version 1)
Quarter: 2025Q2

REPORT INFORMATION
  Report Type: Report from Study
  Country: US (occurrence: US)
  Receive Date: 20250516
  Receipt Date: 20250516
  Transmission Date: 20250717
  Serious: Yes (Other)
  Sender: MALLINCKRODT
  Company Number: US-MALLINCKRODT-MNK202502420

PATIENT
  Age: 6 Month
  Sex: Female
  Weight: 6 kg

DRUGS (4)
  1. CORTICOTROPIN [Suspect]
     Active Substance: CORTICOTROPIN
     Indication: Infantile spasms
     Route: 030
     Dates: start: 20250417
  2. CORTICOTROPIN [Suspect]
     Active Substance: CORTICOTROPIN
  3. PEPCID [Concomitant]
     Active Substance: FAMOTIDINE
  4. BACTRIM [Concomitant]
     Active Substance: SULFAMETHOXAZOLE\TRIMETHOPRIM

REACTIONS (5)
  - Seizure [Recovering/Resolving]
  - Crying [Not Recovered/Not Resolved]
  - Vessel puncture site injury [Unknown]
  - Irritability [Unknown]
  - Injection site haemorrhage [Unknown]

NARRATIVE: CASE EVENT DATE: 20250101
